FAERS Safety Report 9938064 (Version 1)
Quarter: 2014Q1

REPORT INFORMATION
  Report Type: Spontaneous
  Country: DE (occurrence: DE)
  Receive Date: 20140303
  Receipt Date: 20140303
  Transmission Date: 20141002
  Serious: Yes (Hospitalization)
  Sender: FDA-Public Use
  Company Number: DE-ROCHE-1357960

PATIENT
  Sex: Female

DRUGS (6)
  1. LUCENTIS [Suspect]
     Indication: AGE-RELATED MACULAR DEGENERATION
     Route: 050
     Dates: start: 20121011
  2. VALSARTAN [Concomitant]
     Route: 065
     Dates: start: 201112
  3. L-THYROX [Concomitant]
     Route: 065
     Dates: start: 2004
  4. OMEPRAZOLE [Concomitant]
     Route: 065
     Dates: start: 2004
  5. AMLODIPINE [Concomitant]
     Route: 065
     Dates: start: 201112
  6. BISOPROLOL [Concomitant]
     Route: 065
     Dates: start: 201112

REACTIONS (3)
  - Pulmonary embolism [Unknown]
  - Knee deformity [Recovering/Resolving]
  - Dyspnoea [Recovered/Resolved]
